FAERS Safety Report 20871641 (Version 1)
Quarter: 2022Q2

REPORT INFORMATION
  Report Type: Spontaneous
  Country: US (occurrence: None)
  Receive Date: 20220524
  Receipt Date: 20220524
  Transmission Date: 20220721
  Serious: Yes (Other)
  Sender: FDA-Public Use
  Company Number: None

PATIENT
  Age: 48 Year
  Sex: Female
  Weight: 44.1 kg

DRUGS (2)
  1. LAMOTRIGINE [Suspect]
     Active Substance: LAMOTRIGINE
     Indication: Product used for unknown indication
  2. TOPAMAX [Suspect]
     Active Substance: TOPIRAMATE

REACTIONS (3)
  - Product dispensing error [None]
  - Wrong product administered [None]
  - Product prescribing issue [None]

NARRATIVE: CASE EVENT DATE: 20220509
